FAERS Safety Report 19994176 (Version 1)
Quarter: 2021Q4

REPORT INFORMATION
  Report Type: Spontaneous
  Country: CN (occurrence: CN)
  Receive Date: 20211026
  Receipt Date: 20211026
  Transmission Date: 20220303
  Serious: Yes (Other)
  Sender: FDA-Public Use
  Company Number: CN-ASTRAZENECA-2021A775722

PATIENT

DRUGS (1)
  1. GOSERELIN [Suspect]
     Active Substance: GOSERELIN
     Indication: Uterine leiomyoma
     Dosage: 10.8 MG UNKNOWN
     Route: 058
     Dates: start: 20210810

REACTIONS (2)
  - White blood cell count decreased [Recovering/Resolving]
  - Neutrophil count decreased [Recovering/Resolving]

NARRATIVE: CASE EVENT DATE: 20211009
